FAERS Safety Report 8041033-6 (Version None)
Quarter: 2012Q1

REPORT INFORMATION
  Report Type: 
  Country: None (occurrence: None)
  Receive Date: 20120109
  Receipt Date: 20111228
  Transmission Date: 20120608
  Serious: Yes (Other)
  Sender: FDA-Public Use
  Company Number: DSA_03547_2011

PATIENT
  Age: 69 Year
  Sex: Female

DRUGS (3)
  1. LIPITOR [Concomitant]
  2. VANIQA [Suspect]
     Indication: HAIR GROWTH ABNORMAL
     Dosage: (1 DF BID, TO THE SIDES OF HER FACE TOPICAL)
     Route: 061
  3. COZAAR [Concomitant]

REACTIONS (3)
  - THROAT TIGHTNESS [None]
  - RESPIRATORY DISTRESS [None]
  - DRY THROAT [None]
